FAERS Safety Report 8791183 (Version 1)
Quarter: 2012Q4

REPORT INFORMATION
  Report Type: Spontaneous
  Country: None (occurrence: None)
  Receive Date: 20120911
  Receipt Date: 20120911
  Transmission Date: 20130627
  Serious: Yes (Disabling)
  Sender: FDA-Public Use
  Company Number: AUR-APL-2012-03731

PATIENT
  Age: 64 Year
  Sex: Female

DRUGS (1)
  1. METFORMIN (METFORMIN) [Suspect]

REACTIONS (1)
  - Pruritus generalised [None]
